FAERS Safety Report 8456998 (Version 2)
Quarter: 2020Q1

REPORT INFORMATION
  Report Type: Report from Study
  Country: IN (occurrence: IN)
  Receive Date: 20120313
  Receipt Date: 20200324
  Transmission Date: 20200409
  Serious: Yes (Death, Other)
  Sender: FDA-Public Use
  Company Number: PHHY2012IN018151

PATIENT
  Age: 50 Year
  Sex: Female

DRUGS (1)
  1. GLIVEC [Suspect]
     Active Substance: IMATINIB MESYLATE
     Indication: CHRONIC MYELOID LEUKAEMIA
     Dosage: 400 MG (1X400 MG)
     Route: 048

REACTIONS (2)
  - Diabetic complication [Unknown]
  - Death [Fatal]

NARRATIVE: CASE EVENT DATE: 20200307
